FAERS Safety Report 9337464 (Version 2)
Quarter: 2013Q2

REPORT INFORMATION
  Report Type: Spontaneous
  Country: US (occurrence: US)
  Receive Date: 20130607
  Receipt Date: 20130620
  Transmission Date: 20140414
  Serious: Yes (Other)
  Sender: FDA-Public Use
  Company Number: US-PFIZER INC-2013170221

PATIENT
  Age: 61 Year
  Sex: Male

DRUGS (2)
  1. MOTRIN IB [Suspect]
     Dosage: UNK
  2. TYLENOL [Suspect]
     Dosage: UNK

REACTIONS (2)
  - Incorrect dose administered [Unknown]
  - Gastrointestinal haemorrhage [Unknown]
